FAERS Safety Report 9886637 (Version 1)
Quarter: 2014Q1

REPORT INFORMATION
  Report Type: Spontaneous
  Country: US (occurrence: US)
  Receive Date: 20140210
  Receipt Date: 20140210
  Transmission Date: 20141002
  Serious: Yes (Hospitalization)
  Sender: FDA-Public Use
  Company Number: CHPA2014US002260

PATIENT
  Age: 73 Year
  Sex: Male

DRUGS (5)
  1. THERAFLU FLU AND SORE THROAT [Suspect]
     Indication: OROPHARYNGEAL PAIN
     Dosage: UNK, UNK
     Route: 048
     Dates: start: 2006
  2. THERAFLU FLU AND SORE THROAT [Suspect]
     Indication: VIRAL INFECTION
     Dosage: UNK, UNK
     Route: 048
     Dates: start: 2006
  3. THERAFLU FLU AND SORE THROAT [Suspect]
     Indication: OFF LABEL USE
  4. THERAFLU UNKNOWN [Suspect]
     Indication: COUGH
     Dosage: UNK, UNK
     Route: 048
     Dates: start: 2006
  5. THERAFLU UNKNOWN [Suspect]
     Indication: NASOPHARYNGITIS

REACTIONS (4)
  - Rocky mountain spotted fever [Recovered/Resolved]
  - Anaemia [Recovered/Resolved]
  - Dehydration [Recovered/Resolved]
  - Therapeutic response unexpected [Unknown]
